FAERS Safety Report 4727723-9 (Version None)
Quarter: 2005Q3

REPORT INFORMATION
  Report Type: 
  Country: None (occurrence: None)
  Receive Date: 20050727
  Receipt Date: 20050715
  Transmission Date: 20060218
  Serious: Yes (Hospitalization)
  Sender: FDA-Public Use
  Company Number: 2005-07-1228

PATIENT
  Age: 66 Year
  Sex: Female

DRUGS (6)
  1. CLARITIN REDITABS [Suspect]
     Indication: ECZEMA
     Dosage: 10 MG ORAL
     Route: 048
     Dates: start: 20050712
  2. HERBESSER [Concomitant]
  3. NU-LOTAN (LOSARTAN POTASSIUM) [Concomitant]
  4. LIPOVAS [Concomitant]
  5. DIFLUPREDNATE  OINTMENT [Concomitant]
  6. HIRUDOID [Concomitant]

REACTIONS (5)
  - ANAPHYLACTIC SHOCK [None]
  - CHILLS [None]
  - PHARYNGOLARYNGEAL PAIN [None]
  - PYREXIA [None]
  - TREMOR [None]
